FAERS Safety Report 4536807-X (Version None)
Quarter: 2004Q4

REPORT INFORMATION
  Report Type: 
  Country: None (occurrence: None)
  Receive Date: 20041220
  Receipt Date: 20041213
  Transmission Date: 20050328
  Serious: Yes (Other)
  Sender: FDA-Public Use
  Company Number: DE-2004-036632

PATIENT
  Sex: 0

DRUGS (1)
  1. SOTALOL (SOTALOL HYDROCHLORIDE) [Suspect]

REACTIONS (1)
  - PANCREATITIS [None]
